FAERS Safety Report 9115500 (Version 1)
Quarter: 2013Q1

REPORT INFORMATION
  Report Type: Spontaneous
  Country: US (occurrence: US)
  Receive Date: 20130225
  Receipt Date: 20130225
  Transmission Date: 20140127
  Serious: No
  Sender: FDA-Public Use
  Company Number: US-009507513-1302USA011529

PATIENT
  Sex: Female

DRUGS (3)
  1. CORICIDIN HBP COLD AND FLU [Suspect]
     Indication: INFLUENZA
     Dosage: UNK, UNKNOWN
     Route: 048
  2. CORICIDIN HBP COLD AND FLU [Suspect]
     Indication: COUGH
  3. CORICIDIN HBP COLD AND FLU [Suspect]
     Indication: RESPIRATORY TRACT CONGESTION

REACTIONS (4)
  - Ocular hyperaemia [Not Recovered/Not Resolved]
  - Eye swelling [Not Recovered/Not Resolved]
  - Lacrimation increased [Not Recovered/Not Resolved]
  - Drug ineffective [Unknown]
